FAERS Safety Report 26169929 (Version 1)
Quarter: 2025Q4

REPORT INFORMATION
  Report Type: Spontaneous
  Country: US (occurrence: None)
  Receive Date: 20251216
  Receipt Date: 20251216
  Transmission Date: 20260119
  Serious: Yes (Life-Threatening, Hospitalization)
  Sender: FDA-CTU
  Company Number: None

PATIENT
  Age: 70 Year
  Sex: Male
  Weight: 72.8 kg

DRUGS (1)
  1. CETUXIMAB [Suspect]
     Active Substance: CETUXIMAB
     Dosage: 900 MG  ONCE INTRAVENOUS
     Route: 042

REACTIONS (14)
  - Infusion related reaction [None]
  - Seizure [None]
  - Mental status changes [None]
  - Loss of consciousness [None]
  - Flushing [None]
  - Pallor [None]
  - Nausea [None]
  - Vomiting [None]
  - Hypotension [None]
  - Tachycardia [None]
  - Hypoxia [None]
  - Disorientation [None]
  - Presyncope [None]
  - Urinary incontinence [None]

NARRATIVE: CASE EVENT DATE: 20251126
